FAERS Safety Report 10201407 (Version 3)
Quarter: 2014Q4

REPORT INFORMATION
  Report Type: Report from Study
  Country: US (occurrence: US)
  Receive Date: 20140528
  Receipt Date: 20141201
  Transmission Date: 20150528
  Serious: Yes (Other)
  Sender: FDA-Public Use
  Company Number: US-BAYER-2014-072613

PATIENT
  Age: 76 Year
  Sex: Female

DRUGS (18)
  1. ADEMPAS [Suspect]
     Active Substance: RIOCIGUAT
     Indication: PULMONARY ARTERIAL HYPERTENSION
     Dosage: 1.5 MG, TID
     Route: 048
     Dates: start: 20140529
  2. STOOL SOFTENER [Concomitant]
     Active Substance: DOCUSATE CALCIUM
  3. DIOVAN [Concomitant]
     Active Substance: VALSARTAN
  4. CELEXA [Concomitant]
     Active Substance: CITALOPRAM HYDROBROMIDE
  5. ADEMPAS [Suspect]
     Active Substance: RIOCIGUAT
     Indication: PULMONARY ARTERIAL HYPERTENSION
     Dosage: 1 MG, TID
     Route: 048
     Dates: start: 20140415
  6. AMBIEN [Concomitant]
     Active Substance: ZOLPIDEM TARTRATE
  7. FOLIC ACID. [Concomitant]
     Active Substance: FOLIC ACID
  8. EPOGEN [Concomitant]
     Active Substance: ERYTHROPOIETIN
  9. CLARITIN [Concomitant]
     Active Substance: LORATADINE
  10. NASONEX [Concomitant]
     Active Substance: MOMETASONE FUROATE
  11. ADEMPAS [Suspect]
     Active Substance: RIOCIGUAT
     Indication: PULMONARY ARTERIAL HYPERTENSION
     Dosage: 1 MG, TID
     Route: 048
     Dates: start: 20131216, end: 20141118
  12. WARFARIN [Concomitant]
     Active Substance: WARFARIN
  13. RENAL [VITAMINS NOS] [Concomitant]
  14. BENEFIBER [Concomitant]
     Active Substance: STARCH, WHEAT
  15. RENAGEL [SEVELAMER HYDROCHLORIDE] [Concomitant]
  16. SYNTHROID [Concomitant]
     Active Substance: LEVOTHYROXINE SODIUM
  17. DILTIAZEM HYDROCHLORIDE EXTENDED RELEASE [Concomitant]
     Active Substance: DILTIAZEM HYDROCHLORIDE
  18. ZOCOR [Concomitant]
     Active Substance: SIMVASTATIN

REACTIONS (4)
  - Dyspnoea [None]
  - Hypotension [None]
  - Pulmonary veno-occlusive disease [None]
  - Fluid retention [None]

NARRATIVE: CASE EVENT DATE: 20140513
